FAERS Safety Report 4918805-7 (Version None)
Quarter: 2006Q1

REPORT INFORMATION
  Report Type: 
  Country: None (occurrence: None)
  Receive Date: 20060216
  Receipt Date: 20060203
  Transmission Date: 20060701
  Serious: Yes (Hospitalization)
  Sender: FDA-Public Use
  Company Number: US016676

PATIENT
  Age: 76 Year
  Sex: Male
  Weight: 76 kg

DRUGS (15)
  1. ARSENIC TRIOXIDE [Suspect]
     Indication: ACUTE MYELOID LEUKAEMIA
     Dosage: 20 MG Q72HR INTRAVENOUS DRIP
     Route: 041
     Dates: start: 20051121, end: 20060201
  2. ARSENIC TRIOXIDE [Suspect]
     Indication: MYELODYSPLASTIC SYNDROME
     Dosage: 20 MG Q72HR INTRAVENOUS DRIP
     Route: 041
     Dates: start: 20051121, end: 20060201
  3. MYLOTARG [Suspect]
     Indication: ACUTE MYELOID LEUKAEMIA
  4. MYLOTARG [Suspect]
     Indication: MYELODYSPLASTIC SYNDROME
  5. DIFLUCAN [Concomitant]
  6. LOTREL [Concomitant]
  7. ATENOLOL [Concomitant]
  8. SYNTHROID [Concomitant]
  9. PRILOSEC [Concomitant]
  10. PROSCAR [Concomitant]
  11. FLOMAX [Concomitant]
  12. MULTIVITAMIN AND MINERAL SUPPLEMENT [Concomitant]
  13. ZITHROMAX [Concomitant]
  14. VFEND [Concomitant]
  15. ACYCLOVIR SODIUM [Concomitant]

REACTIONS (9)
  - BLOOD BICARBONATE DECREASED [None]
  - CRYPTOGENIC ORGANIZING PNEUMONIA [None]
  - FEBRILE NEUTROPENIA [None]
  - HAEMOGLOBIN DECREASED [None]
  - HYPOTENSION [None]
  - LUNG INFILTRATION [None]
  - LUNG NEOPLASM [None]
  - PLATELET COUNT DECREASED [None]
  - WHITE BLOOD CELL COUNT DECREASED [None]
